FAERS Safety Report 19955889 (Version 1)
Quarter: 2021Q4

REPORT INFORMATION
  Report Type: Spontaneous
  Country: US (occurrence: US)
  Receive Date: 20211014
  Receipt Date: 20211014
  Transmission Date: 20220303
  Serious: No
  Sender: FDA-Public Use
  Company Number: US-PFIZER INC-202100918592

PATIENT
  Age: 43 Year
  Sex: Female

DRUGS (2)
  1. XELJANZ XR [Suspect]
     Active Substance: TOFACITINIB CITRATE
     Dosage: 11 MG
     Dates: start: 20210615
  2. CHANTIX [Suspect]
     Active Substance: VARENICLINE TARTRATE

REACTIONS (3)
  - Product dose omission issue [Unknown]
  - Nausea [Unknown]
  - Vomiting [Unknown]
